FAERS Safety Report 5123701-9 (Version None)
Quarter: 2006Q3

REPORT INFORMATION
  Report Type: 
  Country: None (occurrence: None)
  Receive Date: 20060811
  Receipt Date: 20060508
  Transmission Date: 20061208
  Serious: No
  Sender: FDA-Public Use
  Company Number: S06-USA-01846-01

PATIENT
  Age: 85 Year
  Sex: Male

DRUGS (8)
  1. NAMENDA [Suspect]
     Indication: DEMENTIA
     Dosage: 5 MG QD PO
     Route: 048
     Dates: start: 20060401, end: 20060401
  2. NAMENDA [Suspect]
     Indication: DEMENTIA
     Dosage: 5 MG QD PO
     Route: 047
     Dates: start: 20060506
  3. LIPITOR [Concomitant]
  4. LEVOTHYROXINE [Concomitant]
  5. PROZAC [Concomitant]
  6. ASPIRIN [Concomitant]
  7. NITROGLYN 2% OINTMENT [Concomitant]
  8. ATENOLOL [Concomitant]

REACTIONS (1)
  - CONFUSIONAL STATE [None]
